FAERS Safety Report 11060563 (Version 1)
Quarter: 2015Q2

REPORT INFORMATION
  Report Type: Other
  Country: GB (occurrence: GB)
  Receive Date: 20150423
  Receipt Date: 20150423
  Transmission Date: 20150821
  Serious: Yes (Hospitalization)
  Sender: FDA-Public Use
  Company Number: GB-MYLANLABS-2015M1012021

PATIENT

DRUGS (5)
  1. OMEPRAZOLE. [Concomitant]
     Active Substance: OMEPRAZOLE
     Dosage: 20 MG, QD (20MG 1 DAILY)
  2. LORATADINE. [Suspect]
     Active Substance: LORATADINE
     Indication: ADVERSE DRUG REACTION
     Dosage: 10 MG, UNK
  3. NITROFURANTOIN. [Concomitant]
     Active Substance: NITROFURANTOIN
     Dosage: 50 MG, QD (50MG 1 AT NIGHT)
  4. INDAPAMIDE. [Concomitant]
     Active Substance: INDAPAMIDE
     Dosage: 2.5 MG, QD (2.5MG 1 IN THE MORNING)
  5. ENALAPRIL [Concomitant]
     Active Substance: ENALAPRIL
     Dosage: 5 MG, QD (5MG 1 DAILY)

REACTIONS (8)
  - Nightmare [Unknown]
  - Withdrawal syndrome [Unknown]
  - Cough [Unknown]
  - Fear [Unknown]
  - Tremor [Unknown]
  - Chest discomfort [Unknown]
  - Lower respiratory tract infection [Unknown]
  - Wheezing [Unknown]
